FAERS Safety Report 9486106 (Version 1)
Quarter: 2013Q3

REPORT INFORMATION
  Report Type: Spontaneous
  Country: US (occurrence: None)
  Receive Date: 20130827
  Receipt Date: 20130827
  Transmission Date: 20140515
  Serious: Yes (Other)
  Sender: FDA-Public Use
  Company Number: None

PATIENT
  Age: 57 Year
  Sex: Female
  Weight: 54.43 kg

DRUGS (1)
  1. VENLAFAXINE ER 150 MG TEVA USA [Suspect]
     Indication: DEPRESSION
     Dosage: 1 ONCE DAILY TAKEN BY MOUTH
     Route: 048
     Dates: start: 20130820, end: 20130824

REACTIONS (8)
  - Tremor [None]
  - Nausea [None]
  - Dizziness [None]
  - Panic attack [None]
  - Crying [None]
  - Agitation [None]
  - Aggression [None]
  - Abnormal dreams [None]
